FAERS Safety Report 23857801 (Version 1)
Quarter: 2024Q2

REPORT INFORMATION
  Report Type: Spontaneous
  Country: US (occurrence: None)
  Receive Date: 20240514
  Receipt Date: 20240514
  Transmission Date: 20240716
  Serious: Yes (Other)
  Sender: FDA-Public Use
  Company Number: None

PATIENT
  Age: 65 Year
  Sex: Female
  Weight: 97.4 kg

DRUGS (2)
  1. OSIMERTINIB [Suspect]
     Active Substance: OSIMERTINIB
     Dosage: FREQUENCY : DAILY;?
     Route: 048
  2. OSIMERTINIB [Concomitant]
     Active Substance: OSIMERTINIB

REACTIONS (1)
  - Henoch-Schonlein purpura [None]

NARRATIVE: CASE EVENT DATE: 20240504
